FAERS Safety Report 11631388 (Version 1)
Quarter: 2015Q4

REPORT INFORMATION
  Report Type: Spontaneous
  Country: IN (occurrence: IN)
  Receive Date: 20151014
  Receipt Date: 20151014
  Transmission Date: 20160304
  Serious: Yes (Hospitalization)
  Sender: FDA-Public Use
  Company Number: IN-GLENMARK PHARMACEUTICALS INC, USA.-2015GMK016919

PATIENT
  Age: 56 Year
  Sex: Female

DRUGS (6)
  1. CLONAZEPAM. [Concomitant]
     Active Substance: CLONAZEPAM
     Dosage: 1 MG, HS  FOR A WEEK
     Route: 048
  2. CLONAZEPAM. [Concomitant]
     Active Substance: CLONAZEPAM
     Indication: DELUSIONAL DISORDER, UNSPECIFIED TYPE
     Dosage: 0.5 MG, QD
  3. OLANZAPINE. [Suspect]
     Active Substance: OLANZAPINE
     Indication: DELUSIONAL DISORDER, UNSPECIFIED TYPE
     Dosage: 10 MG, QD
  4. GABAPENTIN. [Suspect]
     Active Substance: GABAPENTIN
     Indication: RESTLESS LEGS SYNDROME
     Dosage: 100 MG, HS
     Route: 048
  5. FLUPENTHIXOL [Concomitant]
     Active Substance: FLUPENTIXOL DECANOATE
     Indication: DELUSIONAL DISORDER, UNSPECIFIED TYPE
     Dosage: 40 MG, ONCE FORTNIGHTLY
     Route: 030
  6. GABAPENTIN. [Suspect]
     Active Substance: GABAPENTIN
     Indication: OFF LABEL USE

REACTIONS (3)
  - Off label use [Unknown]
  - Restless legs syndrome [Recovering/Resolving]
  - Therapeutic response unexpected [Unknown]
